FAERS Safety Report 20335311 (Version 1)
Quarter: 2022Q1

REPORT INFORMATION
  Report Type: Other
  Country: IN (occurrence: IN)
  Receive Date: 20220114
  Receipt Date: 20220114
  Transmission Date: 20220423
  Serious: Yes (Hospitalization, Other)
  Sender: FDA-Public Use
  Company Number: IN-Aprecia Pharmaceuticals-APRE20220043

PATIENT
  Age: 62 Year
  Sex: Male

DRUGS (1)
  1. LEVETIRACETAM [Suspect]
     Active Substance: LEVETIRACETAM
     Indication: Seizure
     Dosage: 150 TABLETS (TOTAL DOSE = 37,500MG)
     Route: 048

REACTIONS (9)
  - Polyneuropathy [Recovered/Resolved]
  - Intentional overdose [Recovered/Resolved]
  - Toxicity to various agents [Recovered/Resolved]
  - Acute kidney injury [Recovered/Resolved]
  - Renal impairment [Recovered/Resolved]
  - Somnolence [Recovered/Resolved]
  - Hyporesponsive to stimuli [Recovered/Resolved]
  - Hypotonia [Recovered/Resolved]
  - Areflexia [Recovered/Resolved]
